FAERS Safety Report 7599283-9 (Version None)
Quarter: 2011Q3

REPORT INFORMATION
  Report Type: 
  Country: None (occurrence: None)
  Receive Date: 20110711
  Receipt Date: 20100116
  Transmission Date: 20111222
  Serious: Yes (Death, Hospitalization, Other)
  Sender: FDA-Public Use
  Company Number: US-BAYER-201011165NA

PATIENT
  Age: 66 Year
  Sex: Male
  Weight: 97.506 kg

DRUGS (28)
  1. VISIPAQUE [Concomitant]
     Indication: CATHETERISATION CARDIAC
     Dosage: 60 ML, UNK
     Dates: start: 20061231
  2. LASIX [Concomitant]
     Dosage: 20 MG TWICE WEEKLY
     Route: 048
  3. TOPROL-XL [Concomitant]
     Dosage: 100 MG, QD
     Route: 048
  4. INTEGRILIN [Concomitant]
     Dosage: RENAL DOSING 180 MCG/KG BOLUS
     Route: 042
     Dates: start: 20061231, end: 20061231
  5. AMIODARONE HCL [Concomitant]
     Indication: ATRIAL FIBRILLATION
     Dosage: INFUSION
     Route: 042
     Dates: start: 20060109
  6. TRASYLOL [Suspect]
     Indication: CORONARY ARTERY BYPASS
     Dosage: 200 MG, UNK
     Route: 042
     Dates: start: 20070109, end: 20070109
  7. PLAVIX [Concomitant]
     Dosage: 75 MG, QD
     Route: 048
     Dates: start: 20061230
  8. NORVASC [Concomitant]
     Dosage: 5 G, QD
     Dates: start: 20061231
  9. LIPITOR [Concomitant]
     Dosage: 20 MG, QD
  10. KEFZOL [Concomitant]
     Dosage: 1 G, UNK
     Route: 042
     Dates: start: 20070109
  11. LASIX [Concomitant]
     Dosage: 40 MG, UNK
     Route: 042
     Dates: start: 20070109
  12. ZOCOR [Concomitant]
     Dosage: 20 MG, QD
     Route: 048
     Dates: start: 20061230
  13. PROTAMINE SULFATE [Concomitant]
     Dosage: 500 MG, UNK
     Route: 042
     Dates: start: 20070109
  14. VYTORIN [Concomitant]
     Dosage: 10/20MG, DAILY
     Route: 048
  15. METOPROLOL TARTRATE [Concomitant]
     Dosage: 5 MG X1
     Route: 042
     Dates: start: 20061230
  16. PROPOFOL [Concomitant]
     Dosage: UNK
     Route: 042
     Dates: start: 20070109
  17. ACETYLSALICYLIC ACID SRT [Concomitant]
     Dosage: 81 MG, QD
     Route: 048
     Dates: start: 20061230
  18. HEPARIN [Concomitant]
     Dosage: 50 MCG/MIN INFUSION
     Route: 042
     Dates: start: 20061231
  19. NIPRIDE [Concomitant]
     Indication: HYPERTENSION
     Dosage: INFUSION
     Route: 042
     Dates: start: 20060109
  20. CALCIUM CARBONATE [Concomitant]
     Dosage: UNK
     Dates: start: 20070109
  21. INTEGRILIN [Concomitant]
     Dosage: 1MCG/KG/MIN INFUSION
     Route: 042
     Dates: start: 20061231, end: 20061231
  22. HEPARIN [Concomitant]
     Dosage: UNK
     Dates: start: 20070109
  23. CADUET [Concomitant]
     Dosage: 10/20MG DAILY
     Route: 048
     Dates: start: 20040101
  24. METOPROLOL TARTRATE [Concomitant]
     Dosage: 50MG X2, EVERY 12 HOURS
     Route: 048
     Dates: start: 20061230
  25. SIMVASTATIN [Concomitant]
     Dosage: 20 MG, QD
     Route: 048
     Dates: start: 20060101
  26. VERSED [Concomitant]
     Dosage: UNK
     Route: 042
     Dates: start: 20070109
  27. FENTANYL [Concomitant]
     Dosage: UNK
     Route: 042
     Dates: start: 20070109
  28. AMIODARONE HCL [Concomitant]
     Dosage: INFUSION
     Route: 042
     Dates: start: 20070109

REACTIONS (14)
  - ORGAN FAILURE [None]
  - CEREBROVASCULAR ACCIDENT [None]
  - RENAL INJURY [None]
  - CARDIAC DISORDER [None]
  - INJURY [None]
  - UNEVALUABLE EVENT [None]
  - ANHEDONIA [None]
  - RENAL IMPAIRMENT [None]
  - ANXIETY [None]
  - DEPRESSION [None]
  - RENAL FAILURE [None]
  - PAIN [None]
  - DEATH [None]
  - FEAR [None]
